FAERS Safety Report 23411910 (Version 1)
Quarter: 2024Q1

REPORT INFORMATION
  Report Type: Spontaneous
  Country: US (occurrence: US)
  Receive Date: 20240117
  Receipt Date: 20240117
  Transmission Date: 20240410
  Serious: Yes (Other)
  Sender: FDA-Public Use
  Company Number: US-PFIZER INC-202400013748

PATIENT
  Age: 62 Year
  Sex: Male

DRUGS (7)
  1. INLYTA [Suspect]
     Active Substance: AXITINIB
     Indication: Renal cell carcinoma
     Dosage: FOUR 1MG TABLETS ORALLY TWICE DAILY
     Route: 048
     Dates: end: 202312
  2. INLYTA [Suspect]
     Active Substance: AXITINIB
     Dosage: FOUR 1MG TABLETS ORALLY TWICE DAILY
     Route: 048
     Dates: start: 20240104
  3. LOSARTAN [Concomitant]
     Active Substance: LOSARTAN
  4. LABETALOL [Concomitant]
     Active Substance: LABETALOL\LABETALOL HYDROCHLORIDE
  5. ADVIL [Concomitant]
     Active Substance: IBUPROFEN
  6. TYLENOL [Concomitant]
     Active Substance: ACETAMINOPHEN
  7. OTEZLA [Concomitant]
     Active Substance: APREMILAST

REACTIONS (5)
  - Hip surgery [Unknown]
  - Palmar-plantar erythrodysaesthesia syndrome [Recovering/Resolving]
  - Blood pressure increased [Recovering/Resolving]
  - Pain in extremity [Recovering/Resolving]
  - Hyperkeratosis [Recovering/Resolving]

NARRATIVE: CASE EVENT DATE: 20231201
